FAERS Safety Report 5933176-5 (Version None)
Quarter: 2008Q4

REPORT INFORMATION
  Report Type: 
  Country: None (occurrence: None)
  Receive Date: 20081028
  Receipt Date: 20081020
  Transmission Date: 20090506
  Serious: Yes (Hospitalization)
  Sender: FDA-Public Use
  Company Number: US-GILEAD-2008-0018440

PATIENT
  Sex: Female
  Weight: 80.812 kg

DRUGS (16)
  1. LETAIRIS [Suspect]
     Indication: PULMONARY ARTERIAL HYPERTENSION
     Route: 048
     Dates: start: 20080822, end: 20080826
  2. LASIX [Concomitant]
  3. COREG [Concomitant]
  4. MINOXIDIL [Concomitant]
  5. AVAPRO [Concomitant]
  6. HUMALOG [Concomitant]
  7. ZOCOR [Concomitant]
  8. PROVENTIL [Concomitant]
  9. ADVAIR DISKUS 100/50 [Concomitant]
  10. SYNTHROID [Concomitant]
  11. ASPIRIN [Concomitant]
  12. ATIVAN [Concomitant]
  13. DARVOCET [Concomitant]
  14. RESTORIL [Concomitant]
  15. LYRICA [Concomitant]
  16. FOLIC ACID [Concomitant]

REACTIONS (2)
  - CARDIAC FAILURE CONGESTIVE [None]
  - PULMONARY ARTERIAL HYPERTENSION [None]
